FAERS Safety Report 23580073 (Version 1)
Quarter: 2024Q1

REPORT INFORMATION
  Report Type: Spontaneous
  Country: FR (occurrence: FR)
  Receive Date: 20240229
  Receipt Date: 20240229
  Transmission Date: 20240410
  Serious: Yes (Other)
  Sender: FDA-Public Use
  Company Number: None

PATIENT
  Age: 52 Year
  Sex: Male
  Weight: 67 kg

DRUGS (5)
  1. VEKLURY [Suspect]
     Active Substance: REMDESIVIR
     Indication: COVID-19
     Dosage: POWDER FOR CONCENTRATE FOR SOLUTION FOR  INFUSION
     Route: 042
     Dates: start: 20231110, end: 20231113
  2. VEKLURY [Suspect]
     Active Substance: REMDESIVIR
     Dosage: UNK UNK, BID
     Route: 042
     Dates: start: 20231110, end: 20231113
  3. VEKLURY [Suspect]
     Active Substance: REMDESIVIR
     Dosage: UNK UNK, QD
     Route: 042
     Dates: start: 20231110, end: 20231113
  4. BACLOFEN [Concomitant]
     Active Substance: BACLOFEN
     Indication: Multiple sclerosis
     Dosage: 1 DOSAGE FORM, TID
     Route: 048
  5. DALFAMPRIDINE [Concomitant]
     Active Substance: DALFAMPRIDINE
     Indication: Multiple sclerosis
     Dosage: 1 DOSAGE FORM, TID
     Route: 048

REACTIONS (2)
  - Hepatic cytolysis [Recovered/Resolved]
  - Neutropenia [Recovered/Resolved]

NARRATIVE: CASE EVENT DATE: 20231112
